FAERS Safety Report 6999214-6 (Version None)
Quarter: 2010Q3

REPORT INFORMATION
  Report Type: 
  Country: None (occurrence: None)
  Receive Date: 20100920
  Receipt Date: 20090908
  Transmission Date: 20110219
  Serious: Yes (Other)
  Sender: FDA-Public Use
  Company Number: US-ASTRAZENECA-2009UW13305

PATIENT
  Age: 19495 Day
  Sex: Female
  Weight: 77.1 kg

DRUGS (11)
  1. SEROQUEL [Suspect]
     Indication: BIPOLAR DISORDER
     Route: 048
     Dates: start: 19970101, end: 20040612
  2. SEROQUEL [Suspect]
     Indication: DEPRESSION
     Route: 048
     Dates: start: 19970101, end: 20040612
  3. SEROQUEL [Suspect]
     Route: 048
     Dates: start: 20050214, end: 20060329
  4. SEROQUEL [Suspect]
     Route: 048
     Dates: start: 20050214, end: 20060329
  5. SEROQUEL [Suspect]
     Route: 048
     Dates: start: 20060329, end: 20060425
  6. SEROQUEL [Suspect]
     Route: 048
     Dates: start: 20060329, end: 20060425
  7. HALDOL [Concomitant]
     Dates: start: 20010926, end: 20021230
  8. CYMBALTA [Concomitant]
     Dates: start: 19990101
  9. DEPAKOTE [Concomitant]
     Dates: start: 19990101
  10. ZYPREXA [Concomitant]
     Indication: BIPOLAR DISORDER
     Dates: start: 20000406
  11. ZYPREXA [Concomitant]
     Dates: start: 20010913

REACTIONS (3)
  - DIABETIC COMA [None]
  - OBESITY [None]
  - TYPE 2 DIABETES MELLITUS [None]
